FAERS Safety Report 5913151-7 (Version None)
Quarter: 2008Q4

REPORT INFORMATION
  Report Type: 
  Country: None (occurrence: None)
  Receive Date: 20081009
  Receipt Date: 20080922
  Transmission Date: 20090506
  Serious: No
  Sender: FDA-Public Use
  Company Number: US-JNJFOC-20080905538

PATIENT
  Age: 60 Year
  Sex: Male
  Weight: 83.9 kg

DRUGS (4)
  1. INVEGA [Suspect]
     Indication: HALLUCINATION, AUDITORY
     Route: 048
  2. FUROSIMIDE [Concomitant]
     Indication: DIURETIC THERAPY
  3. LACTULOSE [Concomitant]
     Indication: HEPATIC ENCEPHALOPATHY
  4. INSULIN [Concomitant]
     Indication: TYPE 2 DIABETES MELLITUS

REACTIONS (1)
  - PNEUMONIA [None]
